FAERS Safety Report 14617175 (Version 1)
Quarter: 2018Q1

REPORT INFORMATION
  Report Type: Spontaneous
  Country: IT (occurrence: IT)
  Receive Date: 20180309
  Receipt Date: 20180309
  Transmission Date: 20180509
  Serious: Yes (Death, Other)
  Sender: FDA-Public Use
  Company Number: IT-OTSUKA-2018_005747

PATIENT
  Age: 27 Year

DRUGS (4)
  1. G-CSF [Concomitant]
     Active Substance: GRANULOCYTE COLONY-STIMULATING FACTOR NOS
     Indication: NEUTROPENIA
     Dosage: 5 MCG/KG, QD (1/DAY)
     Route: 065
  2. MELPHALAN. [Suspect]
     Active Substance: MELPHALAN
     Indication: EWING^S SARCOMA METASTATIC
     Dosage: 140 MG/M2, SINGLE
     Route: 042
  3. BUSULFAN. [Suspect]
     Active Substance: BUSULFAN
     Indication: EWING^S SARCOMA METASTATIC
     Dosage: 0.8 MG/KG, QID FOR FOUR DAYS
     Route: 042
  4. URSODESOXYCHOLIC ACID [Concomitant]
     Active Substance: URSODIOL
     Indication: PROPHYLAXIS
     Dosage: UNK
     Route: 065

REACTIONS (4)
  - Venoocclusive liver disease [Unknown]
  - Multiple organ dysfunction syndrome [Fatal]
  - Product use issue [Unknown]
  - Off label use [Unknown]
